FAERS Safety Report 19079667 (Version 1)
Quarter: 2021Q1

REPORT INFORMATION
  Report Type: Other
  Country: IT (occurrence: IT)
  Receive Date: 20210331
  Receipt Date: 20210331
  Transmission Date: 20210420
  Serious: Yes (Hospitalization)
  Sender: FDA-Public Use
  Company Number: IT-VALIDUS PHARMACEUTICALS LLC-IT-2021VAL000210

PATIENT
  Age: 79 Year
  Sex: Female

DRUGS (11)
  1. SPIRONOLACTONE. [Concomitant]
     Active Substance: SPIRONOLACTONE
     Indication: PRODUCT USED FOR UNKNOWN INDICATION
  2. FEBUXOSTAT. [Suspect]
     Active Substance: FEBUXOSTAT
     Indication: GRAVITATIONAL OEDEMA
     Dosage: 80 MG, QD
     Route: 048
     Dates: start: 20190107, end: 20190123
  3. LASIX [Suspect]
     Active Substance: FUROSEMIDE
     Indication: GRAVITATIONAL OEDEMA
     Dosage: 5 DF, QD
     Route: 048
     Dates: start: 20190107, end: 20190123
  4. FENTANYL. [Suspect]
     Active Substance: FENTANYL
     Indication: BACK PAIN
     Dosage: 1 DF, QD
     Route: 062
     Dates: start: 20190121, end: 20190123
  5. ZAROXOLYN [Suspect]
     Active Substance: METOLAZONE
     Indication: GRAVITATIONAL OEDEMA
     Dosage: 2.5 MG, QD
     Route: 048
     Dates: start: 20190107, end: 20190123
  6. COUMADIN [Concomitant]
     Active Substance: WARFARIN SODIUM
     Indication: PRODUCT USED FOR UNKNOWN INDICATION
  7. CARDURA [Concomitant]
     Active Substance: DOXAZOSIN MESYLATE
     Indication: PRODUCT USED FOR UNKNOWN INDICATION
  8. RETACRIT [Concomitant]
     Active Substance: EPOETIN ALFA-EPBX
     Indication: PRODUCT USED FOR UNKNOWN INDICATION
  9. CRESTOR [Concomitant]
     Active Substance: ROSUVASTATIN CALCIUM
     Indication: PRODUCT USED FOR UNKNOWN INDICATION
  10. AMLODIPINE BESILATE [Concomitant]
     Active Substance: AMLODIPINE BESYLATE
     Indication: PRODUCT USED FOR UNKNOWN INDICATION
  11. BISOPROLOL HEMIFUMARATE [Concomitant]
     Active Substance: BISOPROLOL FUMARATE
     Indication: PRODUCT USED FOR UNKNOWN INDICATION

REACTIONS (4)
  - Asthenia [Recovered/Resolved]
  - Hyponatraemia [Recovered/Resolved]
  - Sopor [Recovered/Resolved]
  - Hypokalaemia [Recovered/Resolved]

NARRATIVE: CASE EVENT DATE: 20190123
